FAERS Safety Report 5502206-7 (Version None)
Quarter: 2007Q4

REPORT INFORMATION
  Report Type: 
  Country: None (occurrence: None)
  Receive Date: 20071019
  Receipt Date: 20070618
  Transmission Date: 20080405
  Serious: Yes (Other)
  Sender: FDA-Public Use
  Company Number: PHEH2007US08986

PATIENT
  Age: 84 Year
  Sex: Male

DRUGS (1)
  1. ZOMETA [Suspect]
     Indication: PROSTATIC SPECIFIC ANTIGEN INCREASED
     Dosage: 4 MG MONTHLY, INFUSION
     Dates: start: 20070501

REACTIONS (8)
  - BONE PAIN [None]
  - DECREASED APPETITE [None]
  - DEPRESSION [None]
  - FEELING COLD [None]
  - HOT FLUSH [None]
  - HYPERHIDROSIS [None]
  - MOOD SWINGS [None]
  - NAUSEA [None]
